FAERS Safety Report 8121738-9 (Version None)
Quarter: 2012Q1

REPORT INFORMATION
  Report Type: 
  Country: None (occurrence: None)
  Receive Date: 20120208
  Receipt Date: 20120202
  Transmission Date: 20120608
  Serious: Yes (Death)
  Sender: FDA-Public Use
  Company Number: IT-BAXTER-2012BH003502

PATIENT

DRUGS (40)
  1. CYCLOPHOSPHAMIDE [Suspect]
     Route: 065
  2. RITUXIMAB [Suspect]
     Indication: MANTLE CELL LYMPHOMA
     Route: 065
  3. DOXORUBICIN HCL [Suspect]
     Route: 065
  4. STARASID [Suspect]
     Indication: MANTLE CELL LYMPHOMA
     Route: 065
  5. STARASID [Suspect]
     Route: 065
  6. CYCLOPHOSPHAMIDE [Suspect]
     Indication: MANTLE CELL LYMPHOMA
     Route: 065
  7. RITUXIMAB [Suspect]
     Route: 065
  8. VINCRISTINE SULFATE [Suspect]
     Route: 065
  9. DOXORUBICIN HCL [Suspect]
     Route: 065
  10. STARASID [Suspect]
     Route: 065
  11. VINCRISTINE SULFATE [Suspect]
     Route: 065
  12. DEXAMETHASONE [Suspect]
     Route: 065
  13. METHOTREXATE [Suspect]
     Route: 040
  14. CYCLOPHOSPHAMIDE [Suspect]
     Route: 065
  15. DEXAMETHASONE [Suspect]
     Route: 065
  16. DEXAMETHASONE [Suspect]
     Route: 065
  17. METHOTREXATE [Suspect]
     Route: 040
  18. METHOTREXATE [Suspect]
     Route: 040
  19. CYCLOPHOSPHAMIDE [Suspect]
     Route: 065
  20. STARASID [Suspect]
     Route: 065
  21. METHOTREXATE [Suspect]
     Route: 042
  22. RITUXIMAB [Suspect]
     Route: 065
  23. VINCRISTINE SULFATE [Suspect]
     Route: 065
  24. VINCRISTINE SULFATE [Suspect]
     Route: 065
  25. VINCRISTINE SULFATE [Suspect]
     Route: 065
  26. DEXAMETHASONE [Suspect]
     Route: 065
  27. DEXAMETHASONE [Suspect]
     Route: 065
  28. METHOTREXATE [Suspect]
     Indication: MANTLE CELL LYMPHOMA
     Route: 040
  29. METHOTREXATE [Suspect]
     Route: 042
  30. METHOTREXATE [Suspect]
     Route: 042
  31. RITUXIMAB [Suspect]
     Route: 065
  32. VINCRISTINE SULFATE [Suspect]
     Route: 065
  33. DOXORUBICIN HCL [Suspect]
     Indication: MANTLE CELL LYMPHOMA
     Route: 065
  34. DEXAMETHASONE [Suspect]
     Route: 065
  35. METHOTREXATE [Suspect]
     Route: 042
  36. VINCRISTINE SULFATE [Suspect]
     Indication: MANTLE CELL LYMPHOMA
     Route: 065
  37. VINCRISTINE SULFATE [Suspect]
     Route: 065
  38. DOXORUBICIN HCL [Suspect]
     Route: 065
  39. DEXAMETHASONE [Suspect]
     Indication: MANTLE CELL LYMPHOMA
     Route: 065
  40. DEXAMETHASONE [Suspect]
     Route: 065

REACTIONS (1)
  - BRONCHOPULMONARY ASPERGILLOSIS [None]
